FAERS Safety Report 14329384 (Version 2)
Quarter: 2018Q1

REPORT INFORMATION
  Report Type: Spontaneous
  Country: US (occurrence: US)
  Receive Date: 20171227
  Receipt Date: 20180115
  Transmission Date: 20180509
  Serious: No
  Sender: FDA-Public Use
  Company Number: US-BAYER-2017-240387

PATIENT
  Age: 65 Year
  Sex: Female
  Weight: 51.97 kg

DRUGS (2)
  1. CLARITIN LIQUI-GELS [Suspect]
     Active Substance: LORATADINE
     Route: 048
     Dates: start: 20171208, end: 20171208
  2. VITAMIN D [COLECALCIFEROL] [Concomitant]
     Dosage: UNK

REACTIONS (4)
  - Somnolence [Recovered/Resolved]
  - Off label use [Unknown]
  - Adverse drug reaction [Recovered/Resolved]
  - Product use in unapproved indication [Unknown]

NARRATIVE: CASE EVENT DATE: 20171208
